FAERS Safety Report 10150099 (Version 1)
Quarter: 2014Q2

REPORT INFORMATION
  Report Type: Spontaneous
  Country: FR (occurrence: FR)
  Receive Date: 20140502
  Receipt Date: 20140502
  Transmission Date: 20141212
  Serious: Yes (Hospitalization)
  Sender: FDA-Public Use
  Company Number: FR-ABBVIE-14P-056-1231423-00

PATIENT
  Age: 83 Year
  Sex: Male
  Weight: 52 kg

DRUGS (4)
  1. ENANTONE [Suspect]
     Indication: PROSTATE CANCER
     Dates: start: 20131101
  2. CASODEX [Suspect]
     Indication: PROSTATE CANCER
     Route: 048
     Dates: start: 20131101
  3. NIFEDIPINE [Concomitant]
     Indication: PRODUCT USED FOR UNKNOWN INDICATION
  4. CAPTOPRIL HYDROCHLOROTHIAZIDE ARROW [Concomitant]
     Indication: PRODUCT USED FOR UNKNOWN INDICATION
     Dosage: 50/20 MG

REACTIONS (4)
  - Dermatosis [Recovering/Resolving]
  - Dermatitis exfoliative [Recovering/Resolving]
  - Insomnia [Recovering/Resolving]
  - Pruritus [Recovering/Resolving]
